FAERS Safety Report 10398723 (Version 1)
Quarter: 2014Q3

REPORT INFORMATION
  Report Type: Spontaneous
  Country: US (occurrence: US)
  Receive Date: 20140821
  Receipt Date: 20140821
  Transmission Date: 20150326
  Serious: Yes (Disabling)
  Sender: FDA-Public Use
  Company Number: US-PFIZER INC-2014231110

PATIENT
  Age: 46 Year
  Sex: Female
  Weight: 88.44 kg

DRUGS (5)
  1. ADVAIR HFA 45/21 [Concomitant]
     Indication: ASTHMA
     Dosage: [FLUTICASONE PROPIONATE 45MCG, SALMETEROL XINAFOATE 21MCG], UNK
     Dates: end: 2014
  2. SEROQUEL XR [Concomitant]
     Active Substance: QUETIAPINE FUMARATE
     Dosage: UNK
  3. NEURONTIN [Suspect]
     Active Substance: GABAPENTIN
     Indication: BIPOLAR I DISORDER
     Dosage: 400 MG, 3X/DAY
     Dates: start: 1997
  4. EFFEXOR XR [Suspect]
     Active Substance: VENLAFAXINE HYDROCHLORIDE
     Indication: DEPRESSION
     Dosage: 75 MG, 3X/DAY
     Dates: start: 2014
  5. EFFEXOR XR [Suspect]
     Active Substance: VENLAFAXINE HYDROCHLORIDE
     Indication: BIPOLAR I DISORDER

REACTIONS (1)
  - Drug ineffective [Unknown]

NARRATIVE: CASE EVENT DATE: 20101223
